FAERS Safety Report 8365091-4 (Version None)
Quarter: 2012Q2

REPORT INFORMATION
  Report Type: 
  Country: None (occurrence: None)
  Receive Date: 20120516
  Receipt Date: 20120511
  Transmission Date: 20120825
  Serious: Yes (Hospitalization, Other)
  Sender: FDA-Public Use
  Company Number: US-ELI_LILLY_AND_COMPANY-US201205004726

PATIENT
  Sex: Female

DRUGS (4)
  1. HUMULIN R [Suspect]
     Indication: DIABETES MELLITUS
     Dosage: UNK, PRN
     Dates: start: 19620101
  2. NEUROTIN                           /00949202/ [Concomitant]
  3. PERCOCET [Concomitant]
     Indication: PAIN
  4. HUMALOG [Suspect]
     Indication: DIABETES MELLITUS
     Dosage: UNK, PRN
     Dates: start: 19620101

REACTIONS (4)
  - NEUROPATHY PERIPHERAL [None]
  - TOE AMPUTATION [None]
  - BLINDNESS [None]
  - MEMORY IMPAIRMENT [None]
